FAERS Safety Report 20514361 (Version 1)
Quarter: 2022Q1

REPORT INFORMATION
  Report Type: Spontaneous
  Country: US (occurrence: US)
  Receive Date: 20220224
  Receipt Date: 20220224
  Transmission Date: 20220423
  Serious: No
  Sender: FDA-Public Use
  Company Number: US-OAKRUM PHARMA-2021OAK00002

PATIENT
  Age: 68 Year
  Sex: Male
  Weight: 99.773 kg

DRUGS (5)
  1. PYRIMETHAMINE [Suspect]
     Active Substance: PYRIMETHAMINE
     Indication: Eye infection toxoplasmal
     Dosage: 75 MG, 1X/DAY
     Route: 048
     Dates: start: 20210121, end: 202102
  2. PYRIMETHAMINE [Suspect]
     Active Substance: PYRIMETHAMINE
     Dosage: 25 MG, 3X/DAY AT BREAKFAST, LUNCH AND DINNER
     Route: 048
     Dates: start: 202102
  3. ATOVAQUONE [Suspect]
     Active Substance: ATOVAQUONE
     Indication: Eye infection toxoplasmal
     Dosage: UNK
     Dates: start: 2021, end: 202102
  4. ATOVAQUONE [Suspect]
     Active Substance: ATOVAQUONE
     Dosage: DOSE LOWERED
     Dates: start: 202102
  5. LEUCOVORIN [Concomitant]
     Active Substance: LEUCOVORIN
     Dosage: 10 MG, 1X/DAY

REACTIONS (2)
  - Nausea [Recovering/Resolving]
  - Off label use [Not Recovered/Not Resolved]

NARRATIVE: CASE EVENT DATE: 20210121
